FAERS Safety Report 20854978 (Version 4)
Quarter: 2022Q4

REPORT INFORMATION
  Report Type: Report from Study
  Country: US (occurrence: US)
  Receive Date: 20220520
  Receipt Date: 20221116
  Transmission Date: 20230112
  Serious: Yes (Hospitalization)
  Sender: FDA-Public Use
  Company Number: US-BIOGEN-2022BI01123273

PATIENT
  Sex: Female

DRUGS (23)
  1. VUMERITY [Suspect]
     Active Substance: DIROXIMEL FUMARATE
     Indication: Multiple sclerosis
     Route: 050
     Dates: start: 20220418, end: 202205
  2. VUMERITY [Suspect]
     Active Substance: DIROXIMEL FUMARATE
     Route: 050
     Dates: start: 20220405
  3. VUMERITY [Suspect]
     Active Substance: DIROXIMEL FUMARATE
     Route: 050
     Dates: start: 202204
  4. VUMERITY [Suspect]
     Active Substance: DIROXIMEL FUMARATE
     Route: 050
     Dates: start: 202204
  5. SOLU-MEDROL [Concomitant]
     Active Substance: METHYLPREDNISOLONE SODIUM SUCCINATE
     Indication: Product used for unknown indication
     Route: 050
  6. GABAPENTIN [Concomitant]
     Active Substance: GABAPENTIN
     Indication: Product used for unknown indication
     Route: 050
  7. GABAPENTIN [Concomitant]
     Active Substance: GABAPENTIN
     Dosage: TAKE ONE CAPSULE BY MOUTH EVERYDAY AT BED TIME
     Route: 050
     Dates: start: 20220929
  8. GABAPENTIN [Concomitant]
     Active Substance: GABAPENTIN
     Dosage: TAKE ONE CAPSULE QHS
     Route: 050
     Dates: start: 20211206
  9. GABAPENTIN [Concomitant]
     Active Substance: GABAPENTIN
     Dosage: TAKE ONE CAPSULE QHS
     Route: 050
     Dates: start: 20220225
  10. GABAPENTIN [Concomitant]
     Active Substance: GABAPENTIN
     Dosage: TAKE ONE TAB IN AM, ONE TAB PM, 2 TABS QHS
     Route: 050
     Dates: start: 20221004
  11. ACIDOPHILUS [Concomitant]
     Active Substance: LACTOBACILLUS ACIDOPHILUS
     Indication: Product used for unknown indication
     Dosage: STOP AFTER 7 DAYS - 2 TABLETS 2 TIMES A DAY
     Route: 050
  12. XANAX [Concomitant]
     Active Substance: ALPRAZOLAM
     Indication: Product used for unknown indication
     Dosage: 0.5 MILLIGRAM ORAL ONCE - STOP AFTER 1 DOSES
     Route: 050
  13. ATIVAN [Concomitant]
     Active Substance: LORAZEPAM
     Indication: Agitation
     Dosage: GIVE 1 MG IV PUSH ONCE
     Route: 050
  14. REGLAN [Concomitant]
     Active Substance: METOCLOPRAMIDE HYDROCHLORIDE
     Indication: Product used for unknown indication
     Dosage: GIVE 10 MG ONCE IV PUSH
     Route: 050
  15. ZOFRAN ODT [Concomitant]
     Active Substance: ONDANSETRON HYDROCHLORIDE
     Indication: Product used for unknown indication
     Dosage: GIVE 4 MG ORAL ONCE
     Route: 050
  16. ZOFRAN ODT [Concomitant]
     Active Substance: ONDANSETRON HYDROCHLORIDE
     Dosage: GIVE 4 MG ONCE IV PUSH
     Route: 050
  17. SODIUM CHLORIDE [Concomitant]
     Active Substance: SODIUM CHLORIDE
     Indication: Product used for unknown indication
     Route: 050
  18. SODIUM CHLORIDE [Concomitant]
     Active Substance: SODIUM CHLORIDE
     Dosage: SODIUM CHLORIDE 0.9 PERCENT WITHOUT ADDITIV; GIVE 1000 ML IV CONTINUOUS HANG TIME 10 H
     Route: 050
  19. AZITHROMYCIN [Concomitant]
     Active Substance: AZITHROMYCIN
     Indication: Product used for unknown indication
     Route: 050
     Dates: start: 20200304
  20. AUBAGIO [Concomitant]
     Active Substance: TERIFLUNOMIDE
     Indication: Product used for unknown indication
     Route: 050
     Dates: start: 20221003
  21. CYCLOBENZAPRINE [Concomitant]
     Active Substance: CYCLOBENZAPRINE
     Indication: Product used for unknown indication
     Dosage: TAKE ONE TABLET ONCE A DAY AS NEEDED
     Route: 050
     Dates: start: 20220524
  22. VITAMIN D2 [Concomitant]
     Active Substance: ERGOCALCIFEROL
     Indication: Product used for unknown indication
     Dosage: 1,250 MCG (50,000 UNIT)?TAKE ONE CAPSULE ONCE A WEEK
     Route: 050
     Dates: start: 20220310
  23. VITAMIN D2 [Concomitant]
     Active Substance: ERGOCALCIFEROL
     Dosage: 1,250 MCG (50,000 UNIT)?TAKE ONE CAPSULE ONCE A WEEK
     Route: 050
     Dates: start: 20221031

REACTIONS (6)
  - Systemic inflammatory response syndrome [Recovered/Resolved]
  - Supraventricular tachycardia [Recovered/Resolved]
  - Pulmonary sepsis [Unknown]
  - Multiple sclerosis relapse [Unknown]
  - Abdominal discomfort [Unknown]
  - Flushing [Unknown]

NARRATIVE: CASE EVENT DATE: 20220101
